FAERS Safety Report 14742504 (Version 1)
Quarter: 2018Q2

REPORT INFORMATION
  Report Type: Report from Study
  Country: FI (occurrence: FI)
  Receive Date: 20180410
  Receipt Date: 20180410
  Transmission Date: 20180711
  Serious: Yes (Hospitalization)
  Sender: FDA-Public Use
  Company Number: FI-MYLANLABS-2018M1024101

PATIENT
  Sex: Female

DRUGS (7)
  1. LEPONEX [Suspect]
     Active Substance: CLOZAPINE
     Indication: PRODUCT USED FOR UNKNOWN INDICATION
     Dosage: 500 MG, QD
  2. SERENASE                           /00027401/ [Suspect]
     Active Substance: HALOPERIDOL
     Indication: PRODUCT USED FOR UNKNOWN INDICATION
     Dosage: 2 MG, PRN
     Dates: start: 201804
  3. LEPONEX [Suspect]
     Active Substance: CLOZAPINE
     Dosage: 500 MG, QD
     Dates: start: 20180404, end: 20180405
  4. KETIPINOR [Concomitant]
     Active Substance: QUETIAPINE FUMARATE
     Indication: PRODUCT USED FOR UNKNOWN INDICATION
     Dosage: 100 MG, BID
  5. LEPONEX [Suspect]
     Active Substance: CLOZAPINE
     Dosage: 300 MG, QD
     Dates: start: 201803
  6. LITO [Concomitant]
     Active Substance: LITHIUM CARBONATE
     Indication: PRODUCT USED FOR UNKNOWN INDICATION
     Dosage: UNK
  7. DEPRAKINE                          /00228502/ [Concomitant]
     Active Substance: VALPROATE SODIUM
     Indication: PRODUCT USED FOR UNKNOWN INDICATION
     Dosage: UNK

REACTIONS (8)
  - Psychiatric symptom [Unknown]
  - Condition aggravated [Unknown]
  - Pneumonia [Unknown]
  - Loss of consciousness [Unknown]
  - Infection [Unknown]
  - Restlessness [Not Recovered/Not Resolved]
  - Confusional state [Not Recovered/Not Resolved]
  - Chronic obstructive pulmonary disease [Unknown]

NARRATIVE: CASE EVENT DATE: 201803
